FAERS Safety Report 16056773 (Version 1)
Quarter: 2019Q2

REPORT INFORMATION
  Report Type: Spontaneous
  Country: ZA (occurrence: US)
  Receive Date: 20190310
  Receipt Date: 20190310
  Transmission Date: 20190711
  Serious: Yes (Hospitalization, Disabling)
  Sender: FDA-Public Use
  Company Number: None

PATIENT
  Age: 47 Year
  Sex: Female
  Weight: 130 kg

DRUGS (4)
  1. PANADO [Concomitant]
     Active Substance: ACETAMINOPHEN
  2. BUT D TABLET [Concomitant]
  3. MIRENA [Suspect]
     Active Substance: LEVONORGESTREL
     Dates: end: 20190228
  4. CORTISONE [Concomitant]
     Active Substance: CORTISONE\HYDROCORTISONE

REACTIONS (11)
  - Procedural pain [None]
  - Weight increased [None]
  - Hepatomegaly [None]
  - Loss of libido [None]
  - Burning sensation [None]
  - Gait disturbance [None]
  - Plantar fasciitis [None]
  - Musculoskeletal stiffness [None]
  - Mobility decreased [None]
  - Infection [None]
  - Complication of device removal [None]

NARRATIVE: CASE EVENT DATE: 20161130
